FAERS Safety Report 25272328 (Version 1)
Quarter: 2025Q2

REPORT INFORMATION
  Report Type: Spontaneous
  Country: US (occurrence: US)
  Receive Date: 20250506
  Receipt Date: 20250506
  Transmission Date: 20250717
  Serious: Yes (Hospitalization, Other)
  Sender: KYOWA
  Company Number: US-KYOWAKIRIN-2025KK008098

PATIENT

DRUGS (1)
  1. NOURIANZ [Suspect]
     Active Substance: ISTRADEFYLLINE
     Indication: Illness
     Dosage: 40 MG, QD
     Route: 048

REACTIONS (2)
  - Cerebrovascular accident [Unknown]
  - Product use in unapproved indication [Unknown]
